FAERS Safety Report 15957242 (Version 1)
Quarter: 2019Q1

REPORT INFORMATION
  Report Type: Report from Study
  Country: CA (occurrence: CA)
  Receive Date: 20190213
  Receipt Date: 20190213
  Transmission Date: 20190417
  Serious: Yes (Other)
  Sender: FDA-Public Use
  Company Number: PHHY2018CA175780

PATIENT
  Sex: Female

DRUGS (1)
  1. GLIVEC [Suspect]
     Active Substance: IMATINIB MESYLATE
     Indication: GASTROINTESTINAL STROMAL TUMOUR
     Dosage: 400 MG, QD
     Route: 048
     Dates: start: 20181116

REACTIONS (9)
  - Malignant neoplasm progression [Unknown]
  - Gait disturbance [Unknown]
  - General physical health deterioration [Unknown]
  - Crying [Unknown]
  - Hypoaesthesia [Unknown]
  - Erythema [Unknown]
  - Fluid retention [Unknown]
  - Gastrointestinal stromal tumour [Unknown]
  - Bone pain [Unknown]
